FAERS Safety Report 8977422 (Version 1)
Quarter: 2012Q4

REPORT INFORMATION
  Report Type: 
  Country: US (occurrence: US)
  Receive Date: 20121220
  Receipt Date: 20121220
  Transmission Date: 20130627
  Serious: No
  Sender: FDA-Public Use
  Company Number: US-PFIZER INC-2012320750

PATIENT
  Age: 63 Year
  Sex: Female
  Weight: 47.62 kg

DRUGS (2)
  1. CAMPTOSAR [Suspect]
     Indication: OVARIAN CANCER
     Dosage: UNK
     Route: 042
     Dates: start: 20121105
  2. TEGRETOL [Concomitant]
     Indication: ABSENCE SEIZURE

REACTIONS (1)
  - Hallucination [Unknown]
